FAERS Safety Report 9402053 (Version 1)
Quarter: 2013Q3

REPORT INFORMATION
  Report Type: Report from Study
  Country: US (occurrence: US)
  Receive Date: 20130716
  Receipt Date: 20130716
  Transmission Date: 20140515
  Serious: No
  Sender: FDA-Public Use
  Company Number: PHEH2013US014813

PATIENT
  Age: 46 Year
  Sex: Female

DRUGS (6)
  1. TASIGNA [Suspect]
     Indication: CHRONIC MYELOID LEUKAEMIA
     Dosage: 400 MG, BID
     Route: 048
  2. FAMOTIDINE [Concomitant]
  3. CELEXA [Concomitant]
  4. AMBENE [Concomitant]
  5. NEXIUM [Concomitant]
  6. ZYRTEC [Concomitant]

REACTIONS (3)
  - Hypersomnia [Unknown]
  - Nasopharyngitis [Unknown]
  - Fatigue [Unknown]
